FAERS Safety Report 22639791 (Version 1)
Quarter: 2023Q2

REPORT INFORMATION
  Report Type: Spontaneous
  Country: US (occurrence: US)
  Receive Date: 20230626
  Receipt Date: 20230626
  Transmission Date: 20230721
  Serious: No
  Sender: FDA-Public Use
  Company Number: US-CARLSBAD-2023USCTISPO00007

PATIENT

DRUGS (1)
  1. DICLOFENAC SODIUM [Suspect]
     Active Substance: DICLOFENAC SODIUM
     Indication: Product used for unknown indication
     Dosage: DELAYED RELEASE TABLETS
     Route: 065

REACTIONS (3)
  - Abdominal discomfort [Unknown]
  - Gastric disorder [Unknown]
  - Product quality issue [Unknown]
